FAERS Safety Report 10625333 (Version 2)
Quarter: 2015Q1

REPORT INFORMATION
  Report Type: Spontaneous
  Country: IT (occurrence: None)
  Receive Date: 20141201
  Receipt Date: 20150218
  Transmission Date: 20150720
  Serious: Yes (Hospitalization)
  Sender: FDA-Public Use
  Company Number: CLINIGEN-003442

PATIENT
  Age: 25 Year
  Sex: Female

DRUGS (1)
  1. FOSCAVIR [Suspect]
     Active Substance: FOSCARNET SODIUM
     Indication: VIRAL INFECTION
     Dosage: NOT OTHERWISE SPECIFIED
     Route: 042
     Dates: start: 20141018, end: 20141027

REACTIONS (2)
  - Renal tubular acidosis [None]
  - Off label use [None]

NARRATIVE: CASE EVENT DATE: 20141018
